FAERS Safety Report 11727945 (Version 7)
Quarter: 2020Q4

REPORT INFORMATION
  Report Type: Report from Study
  Country: JP (occurrence: JP)
  Receive Date: 20151112
  Receipt Date: 20201229
  Transmission Date: 20210113
  Serious: Yes (Hospitalization, Other)
  Sender: FDA-Public Use
  Company Number: JP-INCYTE CORPORATION-2015IN005784

PATIENT

DRUGS (11)
  1. JAKAVI [Suspect]
     Active Substance: RUXOLITINIB
     Dosage: 5 MG, QD
     Route: 048
     Dates: start: 20150519, end: 20150531
  2. FUNGUARD [Concomitant]
     Active Substance: MICAFUNGIN SODIUM
     Indication: OPPORTUNISTIC INFECTION PROPHYLAXIS
     Dosage: 150 MG, UNK
     Route: 065
     Dates: start: 20150424, end: 20150625
  3. THYMOGLOBULINE [Concomitant]
     Active Substance: LAPINE T-LYMPHOCYTE IMMUNE GLOBULIN
     Indication: PRODUCT USED FOR UNKNOWN INDICATION
     Dosage: 1 MG/KG, UNK
     Route: 065
  4. METHYLPREDNISOLONE. [Suspect]
     Active Substance: METHYLPREDNISOLONE
     Indication: CHRONIC GRAFT VERSUS HOST DISEASE IN INTESTINE
  5. METHYLPREDNISOLONE. [Suspect]
     Active Substance: METHYLPREDNISOLONE
     Indication: ACUTE GRAFT VERSUS HOST DISEASE IN SKIN
     Dosage: 1 MG/KG, UNK
     Route: 065
  6. FOSCAVIR [Suspect]
     Active Substance: FOSCARNET SODIUM
     Indication: CYTOMEGALOVIRUS ENTEROCOLITIS
     Dosage: UNK
     Route: 065
     Dates: start: 20150508, end: 20150601
  7. MEROPEN [Concomitant]
     Active Substance: MEROPENEM
     Indication: OPPORTUNISTIC INFECTION PROPHYLAXIS
     Dosage: 3 G, UNK
     Route: 065
     Dates: start: 20150424, end: 20150513
  8. JAKAVI [Suspect]
     Active Substance: RUXOLITINIB
     Dosage: ALTERNATE ADMINISTRATION OF 5 MG, BID AND 5 MG DAILY
     Route: 048
     Dates: start: 20150513, end: 20150518
  9. JAKAVI [Suspect]
     Active Substance: RUXOLITINIB
     Dosage: 5 MG, QOD
     Route: 048
     Dates: start: 20150601, end: 20150706
  10. JAKAVI [Suspect]
     Active Substance: RUXOLITINIB
     Indication: MYELOFIBROSIS
     Dosage: 5 MG, BID
     Route: 048
     Dates: start: 20150424, end: 20150512
  11. DENOSINE ^FAREAST^ [Concomitant]
     Indication: OPPORTUNISTIC INFECTION PROPHYLAXIS
     Dosage: 250 MG, UNK
     Route: 065
     Dates: start: 20150426, end: 20150508

REACTIONS (5)
  - Cytomegalovirus enterocolitis [Recovered/Resolved]
  - Platelet count decreased [Recovered/Resolved]
  - White blood cell count decreased [Recovered/Resolved]
  - Viral haemorrhagic cystitis [Recovered/Resolved]
  - Guillain-Barre syndrome [Recovered/Resolved]

NARRATIVE: CASE EVENT DATE: 20150510
